FAERS Safety Report 7502737-4 (Version None)
Quarter: 2011Q2

REPORT INFORMATION
  Report Type: 
  Country: None (occurrence: None)
  Receive Date: 20110525
  Receipt Date: 20110511
  Transmission Date: 20111010
  Serious: Yes (Hospitalization)
  Sender: FDA-Public Use
  Company Number: FR-CELGENEUS-056-21880-11051486

PATIENT
  Sex: Male

DRUGS (13)
  1. ASPIRIN [Concomitant]
     Dosage: 75 MILLIGRAM
     Route: 065
  2. FORLAX [Concomitant]
     Dosage: 10 GRAM
     Route: 065
  3. ATORVASTATIN [Concomitant]
     Dosage: 20 MILLIGRAM
     Route: 065
  4. AMLODIPINE BESYLATE [Concomitant]
     Dosage: 20 MILLIGRAM
     Route: 065
  5. LEVOTHYROXINE SODIUM [Concomitant]
     Dosage: 100 MICROGRAM
     Route: 065
  6. BISOPROLOL FUMARATE [Concomitant]
     Dosage: 10 MILLIGRAM
     Route: 065
  7. PREVISCAN [Concomitant]
     Dosage: 5 MILLIGRAM
     Route: 065
  8. DURAGESIC-100 [Concomitant]
     Route: 062
  9. TRAMADOL HCL [Concomitant]
     Dosage: 200 MILLIGRAM
     Route: 065
  10. LEDERFOLINE [Concomitant]
     Dosage: 25 MILLIGRAM
     Route: 065
  11. REVLIMID [Suspect]
     Indication: MULTIPLE MYELOMA
     Dosage: 10 MILLIGRAM
     Route: 048
     Dates: start: 20100201, end: 20100711
  12. DEXAMETHASONE [Suspect]
     Indication: MULTIPLE MYELOMA
     Route: 051
     Dates: start: 20100201, end: 20100711
  13. RETACRIT [Concomitant]
     Route: 065

REACTIONS (2)
  - BLOOD THYROID STIMULATING HORMONE DECREASED [None]
  - ANAEMIA [None]
